FAERS Safety Report 7710804-5 (Version None)
Quarter: 2011Q3

REPORT INFORMATION
  Report Type: 
  Country: None (occurrence: None)
  Receive Date: 20110825
  Receipt Date: 20110601
  Transmission Date: 20111222
  Serious: Yes (Other)
  Sender: FDA-Public Use
  Company Number: IE-AMGEN-IRLSP2011028346

PATIENT
  Age: 38 Year
  Sex: Female

DRUGS (1)
  1. ARANESP [Suspect]
     Indication: MULTIPLE MYELOMA
     Dosage: 150 A?G, QWK

REACTIONS (2)
  - TOXICITY TO VARIOUS AGENTS [None]
  - MULTIPLE MYELOMA [None]
